FAERS Safety Report 8282759-9 (Version None)
Quarter: 2012Q2

REPORT INFORMATION
  Report Type: 
  Country: None (occurrence: None)
  Receive Date: 20120413
  Receipt Date: 20120403
  Transmission Date: 20120825
  Serious: Yes (Hospitalization)
  Sender: FDA-Public Use
  Company Number: SE-ROCHE-1056073

PATIENT
  Sex: Male

DRUGS (3)
  1. TELAPREVIR [Suspect]
     Indication: HEPATITIS C
     Dates: start: 20111201
  2. COPEGUS [Suspect]
     Indication: HEPATITIS C
     Dates: start: 20111201
  3. PEGASYS [Suspect]
     Indication: HEPATITIS C
     Dates: start: 20111201

REACTIONS (2)
  - PERICARDITIS [None]
  - STAPHYLOCOCCAL SEPSIS [None]
